FAERS Safety Report 11776267 (Version 1)
Quarter: 2015Q4

REPORT INFORMATION
  Report Type: Report from Study
  Country: BR (occurrence: BR)
  Receive Date: 20151125
  Receipt Date: 20151125
  Transmission Date: 20160304
  Serious: Yes (Hospitalization, Other)
  Sender: FDA-Public Use
  Company Number: PHHY2015BR152618

PATIENT
  Age: 77 Year
  Sex: Male
  Weight: 79.5 kg

DRUGS (3)
  1. RIVASTIGMINE. [Suspect]
     Active Substance: RIVASTIGMINE
     Indication: CONFUSIONAL STATE
     Dosage: 2 DF, QD
     Route: 065
     Dates: start: 201506, end: 201507
  2. EXELON PATCH [Suspect]
     Active Substance: RIVASTIGMINE
     Indication: CONFUSIONAL STATE
     Dosage: 4.6 MG, QD (PATCH 5 CM2)
     Route: 062
     Dates: start: 201505
  3. GLIMEPIRIDE. [Suspect]
     Active Substance: GLIMEPIRIDE
     Indication: PRODUCT USED FOR UNKNOWN INDICATION
     Dosage: UNK, BID
     Route: 065

REACTIONS (7)
  - Hypoglycaemia [Recovering/Resolving]
  - Diabetic metabolic decompensation [Recovering/Resolving]
  - Pneumonia [Recovering/Resolving]
  - Abdominal discomfort [Recovering/Resolving]
  - Drug intolerance [Recovering/Resolving]
  - Salivary hypersecretion [Recovering/Resolving]
  - Product use issue [Unknown]

NARRATIVE: CASE EVENT DATE: 20151026
